FAERS Safety Report 7629352-6 (Version None)
Quarter: 2011Q3

REPORT INFORMATION
  Report Type: 
  Country: None (occurrence: None)
  Receive Date: 20110722
  Receipt Date: 20110712
  Transmission Date: 20111222
  Serious: Yes (Hospitalization)
  Sender: FDA-Public Use
  Company Number: DE-JNJFOC-20110701253

PATIENT
  Sex: Male

DRUGS (5)
  1. FIRMAGON [Concomitant]
     Route: 058
  2. ZOLEDRONIC ACID [Concomitant]
     Route: 042
  3. ABIRATERONE ACETATE [Suspect]
     Route: 048
  4. TRAMADOL HCL [Concomitant]
     Route: 048
  5. ABIRATERONE ACETATE [Suspect]
     Indication: PROSTATE CANCER METASTATIC
     Route: 048
     Dates: start: 20110512

REACTIONS (2)
  - LONG QT SYNDROME [None]
  - PULMONARY OEDEMA [None]
